FAERS Safety Report 8284604-4 (Version None)
Quarter: 2012Q2

REPORT INFORMATION
  Report Type: 
  Country: None (occurrence: None)
  Receive Date: 20120413
  Receipt Date: 20110726
  Transmission Date: 20120825
  Serious: No
  Sender: FDA-Public Use
  Company Number: US-ASTRAZENECA-2011SE44784

PATIENT
  Age: 65 Year
  Sex: Female

DRUGS (2)
  1. CARAFATE [Concomitant]
     Indication: GASTROINTESTINAL DISORDER
  2. NEXIUM [Suspect]
     Indication: GASTRITIS
     Route: 048

REACTIONS (2)
  - DRUG EFFECT DECREASED [None]
  - ABDOMINAL DISCOMFORT [None]
